FAERS Safety Report 12517815 (Version 1)
Quarter: 2016Q2

REPORT INFORMATION
  Report Type: Spontaneous
  Country: GB (occurrence: GB)
  Receive Date: 20160630
  Receipt Date: 20160630
  Transmission Date: 20160815
  Serious: Yes (Other)
  Sender: FDA-Public Use
  Company Number: PHHY2016GB086539

PATIENT
  Age: 29 Year
  Sex: Male

DRUGS (4)
  1. PAROXETINE HYDROCHLORIDE. [Suspect]
     Active Substance: PAROXETINE HYDROCHLORIDE
     Indication: DEPRESSION
     Route: 065
     Dates: start: 20010730
  2. PAROXETINE HYDROCHLORIDE. [Suspect]
     Active Substance: PAROXETINE HYDROCHLORIDE
     Indication: OBSESSIVE-COMPULSIVE DISORDER
  3. PROZAC [Concomitant]
     Active Substance: FLUOXETINE HYDROCHLORIDE
     Indication: PRODUCT USED FOR UNKNOWN INDICATION
     Route: 065
     Dates: start: 20050218
  4. SODIUM VALPROATE [Concomitant]
     Active Substance: VALPROATE SODIUM
     Indication: PRODUCT USED FOR UNKNOWN INDICATION
     Route: 065
     Dates: start: 20031103

REACTIONS (22)
  - Paranoia [Unknown]
  - Drug withdrawal syndrome [Unknown]
  - Aggression [Unknown]
  - Condition aggravated [Unknown]
  - Depression [Unknown]
  - Nervousness [Unknown]
  - Influenza like illness [Unknown]
  - Anxiety [Unknown]
  - Tremor [Unknown]
  - Weight increased [Unknown]
  - Lethargy [Unknown]
  - Self-injurious ideation [Unknown]
  - Fatigue [Unknown]
  - Intentional self-injury [Unknown]
  - Insomnia [Unknown]
  - Muscle twitching [Unknown]
  - Suicidal ideation [Unknown]
  - Mood swings [Unknown]
  - Sensory disturbance [Unknown]
  - Dizziness [Unknown]
  - Agitation [Unknown]
  - Confusional state [Unknown]

NARRATIVE: CASE EVENT DATE: 2003
